FAERS Safety Report 5177371-4 (Version None)
Quarter: 2006Q4

REPORT INFORMATION
  Report Type: 
  Country: None (occurrence: None)
  Receive Date: 20061207
  Receipt Date: 20061127
  Transmission Date: 20070319
  Serious: Yes (Other)
  Sender: FDA-Public Use
  Company Number: 2006145729

PATIENT
  Age: 72 Year
  Sex: Female

DRUGS (3)
  1. SERTRALINE [Suspect]
     Dosage: ORAL
     Route: 048
  2. BENZODIAZEPINE DERIVATIVES (BENZODIAZEPINE DERIVATIVES) [Suspect]
  3. ANTIDEPRESSANTS (ANTIDEPRESSANTS) [Suspect]

REACTIONS (4)
  - COMA [None]
  - INCORRECT DOSE ADMINISTERED [None]
  - RESPIRATORY DEPRESSION [None]
  - SUICIDE ATTEMPT [None]
